FAERS Safety Report 14166347 (Version 1)
Quarter: 2017Q4

REPORT INFORMATION
  Report Type: Spontaneous
  Country: DK (occurrence: DK)
  Receive Date: 20171107
  Receipt Date: 20171107
  Transmission Date: 20180321
  Serious: Yes (Other)
  Sender: FDA-Public Use
  Company Number: DK-TEVA-820921ROM

PATIENT
  Age: 39 Year
  Sex: Female

DRUGS (4)
  1. VELBE [Suspect]
     Active Substance: VINBLASTINE SULFATE
     Indication: HODGKIN^S DISEASE
     Route: 042
     Dates: start: 20160711, end: 20161025
  2. DACARBAZINE ^MEDAC^ [Suspect]
     Active Substance: DACARBAZINE
     Indication: HODGKIN^S DISEASE
     Route: 042
     Dates: start: 20160711, end: 20161025
  3. DOXORUBICIN TEVA [Suspect]
     Active Substance: DOXORUBICIN
     Indication: HODGKIN^S DISEASE
     Route: 042
     Dates: start: 20160711, end: 20161025
  4. BLEOMYCIN ^BAXTER^ [Suspect]
     Active Substance: BLEOMYCIN SULFATE
     Indication: HODGKIN^S DISEASE
     Dates: start: 20160711, end: 20161025

REACTIONS (5)
  - Paraesthesia [Recovering/Resolving]
  - Peroneal nerve palsy [Unknown]
  - Polyneuropathy [Not Recovered/Not Resolved]
  - Nerve injury [Unknown]
  - Pain in extremity [Unknown]

NARRATIVE: CASE EVENT DATE: 20160711
